FAERS Safety Report 20484050 (Version 1)
Quarter: 2022Q1

REPORT INFORMATION
  Report Type: Spontaneous
  Country: US (occurrence: None)
  Receive Date: 20220216
  Receipt Date: 20220216
  Transmission Date: 20220424
  Serious: Yes (unspecified)
  Sender: FDA-Public Use
  Company Number: None

PATIENT
  Age: 59 Year
  Sex: Male
  Weight: 74 kg

DRUGS (1)
  1. RUXIENCE [Suspect]
     Active Substance: RITUXIMAB-PVVR
     Indication: Splenic marginal zone lymphoma
     Dosage: OTHER FREQUENCY : WEEKLY;?
     Route: 041
     Dates: start: 20220214

REACTIONS (6)
  - Infusion related reaction [None]
  - Feeling hot [None]
  - Flushing [None]
  - Nausea [None]
  - Diarrhoea [None]
  - Restless legs syndrome [None]

NARRATIVE: CASE EVENT DATE: 20220214
